FAERS Safety Report 4745850-7 (Version None)
Quarter: 2005Q3

REPORT INFORMATION
  Report Type: 
  Country: None (occurrence: None)
  Receive Date: 20050815
  Receipt Date: 20050815
  Transmission Date: 20060218
  Serious: No
  Sender: FDA-Public Use
  Company Number: None

PATIENT
  Age: 23 Year
  Sex: Female
  Weight: 61.2356 kg

DRUGS (6)
  1. TOPAMAX [Suspect]
     Indication: DEPRESSION
     Dosage: 100 MG   ONCE A DAY   ORAL
     Route: 048
     Dates: start: 20041110, end: 20050813
  2. TOPAMAX [Suspect]
     Indication: MIGRAINE
     Dosage: 100 MG   ONCE A DAY   ORAL
     Route: 048
     Dates: start: 20041110, end: 20050813
  3. TOPAMAX [Suspect]
     Indication: PAIN
     Dosage: 100 MG   ONCE A DAY   ORAL
     Route: 048
     Dates: start: 20041110, end: 20050813
  4. NEURONTIN [Concomitant]
  5. CYMBALTA [Concomitant]
  6. CODEINE W/CAFFEINE [Concomitant]

REACTIONS (1)
  - EYE PAIN [None]
